FAERS Safety Report 4627278-3 (Version None)
Quarter: 2005Q2

REPORT INFORMATION
  Report Type: 
  Country: None (occurrence: None)
  Receive Date: 20050405
  Receipt Date: 20040127
  Transmission Date: 20051028
  Serious: Yes (Hospitalization)
  Sender: FDA-Public Use
  Company Number: BR-BOEHRINGER INGELHEIM PHARM. INC.-2004-BP-00621BP

PATIENT
  Sex: Female
  Weight: 63 kg

DRUGS (7)
  1. MICARDIS [Suspect]
     Indication: CARDIOVASCULAR DISORDER
     Route: 048
     Dates: start: 20030901, end: 20031013
  2. MICARDIS [Suspect]
     Indication: CEREBROVASCULAR ACCIDENT PROPHYLAXIS
  3. AMLODIPINE [Concomitant]
  4. ESPIRONOLACTON [Concomitant]
  5. HIDROCLOROTIEZIDA [Concomitant]
  6. FUROSEMIDE [Concomitant]
  7. NITRATE [Concomitant]

REACTIONS (2)
  - HAEMODIALYSIS [None]
  - RENAL FAILURE [None]
